FAERS Safety Report 5766582-2 (Version None)
Quarter: 2008Q2

REPORT INFORMATION
  Report Type: 
  Country: None (occurrence: None)
  Receive Date: 20080519
  Receipt Date: 20080519
  Transmission Date: 20081010
  Serious: Yes (Hospitalization)
  Sender: FDA-Public Use
  Company Number: None

PATIENT
  Sex: Male
  Weight: 76.6579 kg

DRUGS (4)
  1. XELODA [Suspect]
  2. OXALIPLATIN [Suspect]
  3. CETUXIMAB [Suspect]
  4. AVASTIN [Suspect]

REACTIONS (1)
  - COLONIC OBSTRUCTION [None]
